FAERS Safety Report 9665721 (Version 1)
Quarter: 2013Q4

REPORT INFORMATION
  Report Type: Spontaneous
  Country: US (occurrence: None)
  Receive Date: 20131031
  Receipt Date: 20131031
  Transmission Date: 20140711
  Serious: Yes (Other)
  Sender: FDA-Public Use
  Company Number: None

PATIENT
  Age: 28 Year
  Sex: Female
  Weight: 115.21 kg

DRUGS (1)
  1. BETHEL 30 [Suspect]

REACTIONS (2)
  - Muscle spasms [None]
  - Hyperhidrosis [None]
